FAERS Safety Report 6185466-1 (Version None)
Quarter: 2009Q2

REPORT INFORMATION
  Report Type: 
  Country: None (occurrence: None)
  Receive Date: 20090511
  Receipt Date: 20090507
  Transmission Date: 20091009
  Serious: Yes (Hospitalization)
  Sender: FDA-Public Use
  Company Number: DK-ASTRAZENECA-2009SE01719

PATIENT
  Sex: Female

DRUGS (5)
  1. ARIMIDEX [Suspect]
     Indication: BREAST CANCER METASTATIC
     Route: 048
     Dates: start: 20080101, end: 20090501
  2. NEXIUM [Concomitant]
  3. SELO-ZOK [Concomitant]
  4. ADALAT [Concomitant]
  5. UNIKALK [Concomitant]

REACTIONS (2)
  - ARTHROPATHY [None]
  - RENAL FAILURE [None]
